FAERS Safety Report 20441855 (Version 3)
Quarter: 2022Q1

REPORT INFORMATION
  Report Type: Spontaneous
  Country: IN (occurrence: IN)
  Receive Date: 20220208
  Receipt Date: 20220228
  Transmission Date: 20220424
  Serious: Yes (Disabling, Other)
  Sender: FDA-Public Use
  Company Number: IN-LUPIN PHARMACEUTICALS INC.-2022-01427

PATIENT
  Weight: .8 kg

DRUGS (5)
  1. RIFAMPIN [Suspect]
     Active Substance: RIFAMPIN
     Indication: Brucellosis
     Dosage: UNK
     Route: 064
  2. RIFAMPIN [Suspect]
     Active Substance: RIFAMPIN
     Dosage: UNK
     Route: 048
  3. SULFAMETHOXAZOLE AND TRIMETHOPRIM [Suspect]
     Active Substance: SULFAMETHOXAZOLE\TRIMETHOPRIM
     Indication: Brucellosis
     Dosage: 25 MILLIGRAM/KILOGRAM, BID
     Route: 048
  4. SULFAMETHOXAZOLE AND TRIMETHOPRIM [Suspect]
     Active Substance: SULFAMETHOXAZOLE\TRIMETHOPRIM
     Dosage: UNK
     Route: 048
  5. TRIMETHOPRIM [Suspect]
     Active Substance: TRIMETHOPRIM
     Indication: Brucellosis
     Dosage: UNK
     Route: 048

REACTIONS (14)
  - Hypertrophic cardiomyopathy [Unknown]
  - Premature baby [Unknown]
  - Foetal growth restriction [Unknown]
  - Low birth weight baby [Unknown]
  - Congenital hepatomegaly [Unknown]
  - Neonatal respiratory distress syndrome [Unknown]
  - Prothrombin consumption time prolonged [Unknown]
  - Cyanosis neonatal [Unknown]
  - Neonatal respiratory acidosis [Unknown]
  - Thrombocytopenia neonatal [Unknown]
  - Brucellosis [Unknown]
  - Sepsis neonatal [Unknown]
  - Drug ineffective [Unknown]
  - Neonatal infection [Unknown]
